FAERS Safety Report 7760695-1 (Version None)
Quarter: 2011Q3

REPORT INFORMATION
  Report Type: 
  Country: None (occurrence: None)
  Receive Date: 20110919
  Receipt Date: 20110908
  Transmission Date: 20111222
  Serious: Yes (Other)
  Sender: FDA-Public Use
  Company Number: US-ASTRAZENECA-2011SE54297

PATIENT
  Age: 70 Year
  Sex: Female
  Weight: 65.8 kg

DRUGS (10)
  1. OMEPRAZOLE [Suspect]
     Route: 048
  2. WELLBUTRIN [Concomitant]
  3. SIMVASTATIN [Concomitant]
  4. ARIMIDEX [Suspect]
     Indication: BREAST CANCER METASTATIC
     Route: 048
  5. PROPRANOLOL HYDROCHLORIDE [Concomitant]
  6. FUROSEMIDE [Concomitant]
  7. TAMOXIFEN CITRATE [Suspect]
     Route: 048
  8. COZAAR [Concomitant]
  9. LABETALOL HCL [Concomitant]
  10. ASPIRIN [Concomitant]

REACTIONS (4)
  - AORTIC DISSECTION [None]
  - MUSCULOSKELETAL CHEST PAIN [None]
  - URINARY TRACT INFECTION [None]
  - OEDEMA PERIPHERAL [None]
